FAERS Safety Report 17780748 (Version 1)
Quarter: 2020Q2

REPORT INFORMATION
  Report Type: Spontaneous
  Country: US (occurrence: US)
  Receive Date: 20200513
  Receipt Date: 20200513
  Transmission Date: 20200714
  Serious: No
  Sender: FDA-Public Use
  Company Number: None

PATIENT

DRUGS (1)
  1. KETAMINE 45MG SL TROCHE PROFE [Suspect]
     Active Substance: KETAMINE

REACTIONS (4)
  - Suspected product quality issue [None]
  - Drug ineffective [None]
  - Product preparation error [None]
  - Product dispensing error [None]
